FAERS Safety Report 16475603 (Version 1)
Quarter: 2019Q2

REPORT INFORMATION
  Report Type: Report from Study
  Country: JP (occurrence: JP)
  Receive Date: 20190625
  Receipt Date: 20190625
  Transmission Date: 20190711
  Serious: Yes (Other)
  Sender: FDA-Public Use
  Company Number: JP-BAYER-2019-106569

PATIENT
  Sex: Male

DRUGS (1)
  1. STIVARGA [Suspect]
     Active Substance: REGORAFENIB
     Indication: COLORECTAL CANCER
     Dosage: DAILY DOSE 120 MG
     Route: 048
     Dates: start: 20190528, end: 20190610

REACTIONS (6)
  - Dizziness [None]
  - Tinnitus [None]
  - Bone marrow failure [None]
  - Hepatic function abnormal [None]
  - Oedema peripheral [None]
  - Chills [None]

NARRATIVE: CASE EVENT DATE: 20190608
